FAERS Safety Report 9503630 (Version 3)
Quarter: 2013Q4

REPORT INFORMATION
  Report Type: Spontaneous
  Country: US (occurrence: US)
  Receive Date: 20130906
  Receipt Date: 20131009
  Transmission Date: 20140711
  Serious: Yes (Other)
  Sender: FDA-Public Use
  Company Number: PHHY2013US084888

PATIENT
  Sex: Male

DRUGS (3)
  1. BACLOFEN INTRATHECAL [Suspect]
     Indication: PAIN
     Dosage: UNK UKN, UNK
     Route: 037
  2. CLONIDINE HYDROCHLORIDE [Suspect]
     Dosage: UNK UKN, UNK
     Route: 037
  3. FENTANYL [Suspect]
     Dosage: 158 MG, DAILY
     Route: 037

REACTIONS (7)
  - Unresponsive to stimuli [Unknown]
  - Gait disturbance [Unknown]
  - Muscle spasms [Unknown]
  - Sensory disturbance [Unknown]
  - Groin pain [Unknown]
  - Pain in extremity [Unknown]
  - Pain [Unknown]
